FAERS Safety Report 8270003-8 (Version None)
Quarter: 2012Q2

REPORT INFORMATION
  Report Type: 
  Country: None (occurrence: None)
  Receive Date: 20120410
  Receipt Date: 20120405
  Transmission Date: 20120825
  Serious: Yes (Hospitalization)
  Sender: FDA-Public Use
  Company Number: DE-JNJFOC-20080406518

PATIENT
  Age: 76 Year
  Sex: Female
  Weight: 51 kg

DRUGS (22)
  1. GOLIMUMAB [Suspect]
     Indication: RHEUMATOID ARTHRITIS
     Route: 058
     Dates: start: 20070921
  2. GOLIMUMAB [Suspect]
     Route: 058
     Dates: start: 20071214
  3. GOLIMUMAB [Suspect]
     Route: 058
     Dates: start: 20070727
  4. GOLIMUMAB [Suspect]
     Route: 058
     Dates: start: 20070824
  5. PREDNISOLONE [Concomitant]
     Route: 048
     Dates: start: 20040801
  6. GOLIMUMAB [Suspect]
     Route: 058
     Dates: start: 20080530
  7. GOLIMUMAB [Suspect]
     Route: 058
     Dates: start: 20080208
  8. TRAMADOL HCL [Concomitant]
     Route: 048
     Dates: start: 20050101
  9. ACYCLOVIR [Concomitant]
     Route: 061
     Dates: start: 20071019
  10. GOLIMUMAB [Suspect]
     Route: 058
     Dates: start: 20071019
  11. FOLSAN [Concomitant]
     Route: 048
     Dates: start: 20050401
  12. GOLIMUMAB [Suspect]
     Route: 058
     Dates: start: 20071116
  13. GOLIMUMAB [Suspect]
     Route: 058
     Dates: start: 20080307
  14. CALCIPRONT D3 [Concomitant]
     Route: 048
     Dates: start: 20040801
  15. PANTOPRAZOLE [Concomitant]
     Route: 048
     Dates: start: 20071010
  16. GOLIMUMAB [Suspect]
     Route: 058
     Dates: start: 20070629
  17. AKTONEL [Concomitant]
     Route: 048
     Dates: start: 20040901
  18. METOCLOPRAMIDE [Concomitant]
     Route: 048
     Dates: start: 20071019
  19. NAPROXEN [Concomitant]
     Route: 048
     Dates: start: 20080401
  20. GOLIMUMAB [Suspect]
     Route: 058
     Dates: start: 20080404
  21. GOLIMUMAB [Suspect]
     Route: 058
     Dates: start: 20080502
  22. GOLIMUMAB [Suspect]
     Route: 058
     Dates: start: 20080111

REACTIONS (1)
  - PNEUMONIA [None]
